FAERS Safety Report 10676913 (Version 2)
Quarter: 2014Q4

REPORT INFORMATION
  Report Type: Spontaneous
  Country: JP (occurrence: JP)
  Receive Date: 20141226
  Receipt Date: 20141226
  Transmission Date: 20150529
  Serious: Yes (Other)
  Sender: FDA-Public Use
  Company Number: JP-GLAXOSMITHKLINE-B0951202A

PATIENT
  Age: 7 Decade
  Sex: Male

DRUGS (4)
  1. LECTISOL [Concomitant]
     Active Substance: DAPSONE
     Indication: ANTIFUNGAL PROPHYLAXIS
     Route: 048
     Dates: start: 20130723, end: 20130728
  2. ABACAVIR SULFATE + LAMIVUDINE [Suspect]
     Active Substance: ABACAVIR SULFATE\LAMIVUDINE
     Indication: HIV INFECTION
     Dosage: 1 DF, QD
     Route: 048
     Dates: start: 20130620, end: 20130704
  3. ISENTRESS [Suspect]
     Active Substance: RALTEGRAVIR POTASSIUM
     Route: 048
     Dates: start: 20130620
  4. BAKTAR [Concomitant]
     Active Substance: SULFAMETHOXAZOLE\TRIMETHOPRIM
     Indication: ANTIFUNGAL PROPHYLAXIS
     Route: 048
     Dates: start: 20130709, end: 20130722

REACTIONS (14)
  - Oliguria [Recovering/Resolving]
  - Disseminated intravascular coagulation [Recovering/Resolving]
  - Malaise [Recovered/Resolved]
  - Lymph node pain [Recovering/Resolving]
  - Inflammation [Recovering/Resolving]
  - Immune reconstitution inflammatory syndrome [Recovering/Resolving]
  - Histiocytosis haematophagic [Recovering/Resolving]
  - Shock [Recovering/Resolving]
  - Rash [Recovered/Resolved]
  - Platelet count decreased [Recovering/Resolving]
  - Coagulation test abnormal [Unknown]
  - Hepatic function abnormal [Recovering/Resolving]
  - Renal disorder [Recovering/Resolving]
  - Pyrexia [Recovering/Resolving]

NARRATIVE: CASE EVENT DATE: 20130701
